FAERS Safety Report 15918129 (Version 5)
Quarter: 2025Q3

REPORT INFORMATION
  Report Type: Spontaneous
  Country: EU (occurrence: EU)
  Receive Date: 20190205
  Receipt Date: 20250717
  Transmission Date: 20251020
  Serious: Yes (Hospitalization, Disabling, Congenital Anomaly, Other)
  Sender: SANOFI AVENTIS
  Company Number: None

PATIENT
  Age: 72 Year
  Sex: Female

DRUGS (13)
  1. CIPROFLOXACIN [Suspect]
     Active Substance: CIPROFLOXACIN
     Indication: Escherichia infection
     Route: 034
     Dates: start: 2000
  2. CIPROFLOXACIN [Suspect]
     Active Substance: CIPROFLOXACIN
     Dosage: 750 MG, BID
     Route: 048
     Dates: start: 20010126, end: 20011204
  3. LINEZOLID [Suspect]
     Active Substance: LINEZOLID
     Indication: Staphylococcal infection
     Route: 065
     Dates: start: 2000
  4. LINEZOLID [Suspect]
     Active Substance: LINEZOLID
     Dosage: 600 MG, BID
     Dates: start: 20010126, end: 20011206
  5. SULFAMETHOXAZOLE\TRIMETHOPRIM [Suspect]
     Active Substance: SULFAMETHOXAZOLE\TRIMETHOPRIM
     Indication: Staphylococcal infection
     Dates: start: 1999
  6. SULFAMETHOXAZOLE\TRIMETHOPRIM [Suspect]
     Active Substance: SULFAMETHOXAZOLE\TRIMETHOPRIM
  7. RIFAMPIN [Suspect]
     Active Substance: RIFAMPIN
     Indication: Staphylococcal infection
     Route: 065
     Dates: start: 2000
  8. RIFAMPIN [Suspect]
     Active Substance: RIFAMPIN
     Route: 048
     Dates: start: 20010126, end: 20011204
  9. CITALOPRAM [Concomitant]
     Active Substance: CITALOPRAM
  10. LORMETAZEPAM [Concomitant]
     Active Substance: LORMETAZEPAM
  11. INSULIN NOS [Concomitant]
     Active Substance: INSULIN NOS
  12. TEICOPLANIN [Concomitant]
     Active Substance: TEICOPLANIN
     Indication: Staphylococcal infection
     Dosage: 12 MG/KG, QD (FOR THREE DAY (LOADING DOSE))
  13. TEICOPLANIN [Concomitant]
     Active Substance: TEICOPLANIN
     Dosage: 6 MG/KG, QD (TROUGH LEVEL BETWEEN 11 AND 16  ?G/DL)

REACTIONS (6)
  - Ocular hypertension [Recovered/Resolved]
  - Optic neuritis [Recovered/Resolved with Sequelae]
  - Vision blurred [Recovered/Resolved with Sequelae]
  - Visual acuity reduced [Recovered/Resolved with Sequelae]
  - Hyperkalaemia [Unknown]
  - Gastrointestinal disorder [Unknown]

NARRATIVE: CASE EVENT DATE: 20011115
